FAERS Safety Report 15685245 (Version 1)
Quarter: 2018Q4

REPORT INFORMATION
  Report Type: Spontaneous
  Country: IT (occurrence: IT)
  Receive Date: 20181204
  Receipt Date: 20181204
  Transmission Date: 20190205
  Serious: Yes (Life-Threatening, Hospitalization, Other)
  Sender: FDA-Public Use
  Company Number: IT-PFIZER INC-2003014714

PATIENT
  Age: 78 Year
  Sex: Female

DRUGS (2)
  1. ZOLOFT [Suspect]
     Active Substance: SERTRALINE HYDROCHLORIDE
     Indication: PERSISTENT DEPRESSIVE DISORDER
     Dosage: 50 MG, DAILY
     Route: 048
     Dates: start: 20030320, end: 20030322
  2. LASIX [Suspect]
     Active Substance: FUROSEMIDE
     Indication: CARDIAC FAILURE
     Dosage: 25 MG, DAILY
     Route: 048
     Dates: start: 20030320, end: 20030322

REACTIONS (10)
  - Myalgia [Recovered/Resolved]
  - Confusional state [Recovered/Resolved]
  - Hypotonia [Recovered/Resolved]
  - Anxiety [Recovered/Resolved]
  - Hypochloraemia [Unknown]
  - Inappropriate antidiuretic hormone secretion [Recovered/Resolved]
  - Cardiac failure [Unknown]
  - Hyponatraemia [Recovered/Resolved]
  - Hypokalaemia [Recovered/Resolved]
  - Blood calcium decreased [Recovered/Resolved]

NARRATIVE: CASE EVENT DATE: 20030322
